FAERS Safety Report 7533326-3 (Version None)
Quarter: 2011Q2

REPORT INFORMATION
  Report Type: 
  Country: None (occurrence: None)
  Receive Date: 20110608
  Receipt Date: 20110526
  Transmission Date: 20111010
  Serious: Yes (Hospitalization)
  Sender: FDA-Public Use
  Company Number: US-BAYER-201033567NA

PATIENT
  Age: 24 Year
  Sex: Female
  Weight: 68.027 kg

DRUGS (8)
  1. XANAX [Concomitant]
     Dosage: UNK
     Dates: start: 20060101
  2. PREVACID [Concomitant]
  3. LOESTRIN 1.5/30 [Concomitant]
     Dosage: UNK
     Dates: start: 20070801
  4. YAZ [Suspect]
     Indication: MENSTRUATION IRREGULAR
  5. ORAL CONTRACEPTIVE NOS [Concomitant]
  6. YAZ [Suspect]
     Indication: PREMENSTRUAL SYNDROME
  7. YAZ [Suspect]
     Indication: ACNE
     Dosage: UNK
     Dates: start: 20040101, end: 20081124
  8. SEROQUEL [Concomitant]

REACTIONS (7)
  - ABDOMINAL PAIN [None]
  - INJURY [None]
  - BILIARY DYSKINESIA [None]
  - VOMITING [None]
  - ABDOMINAL PAIN UPPER [None]
  - NAUSEA [None]
  - DECREASED APPETITE [None]
